FAERS Safety Report 21203133 (Version 1)
Quarter: 2022Q3

REPORT INFORMATION
  Report Type: Spontaneous
  Country: CA (occurrence: CA)
  Receive Date: 20220811
  Receipt Date: 20220811
  Transmission Date: 20221027
  Serious: Yes (Other)
  Sender: FDA-Public Use
  Company Number: CA-BAYER-2022P009852

PATIENT
  Sex: Female

DRUGS (3)
  1. REGORAFENIB [Suspect]
     Active Substance: REGORAFENIB
     Indication: Colorectal cancer metastatic
     Dosage: UNK
     Dates: start: 202204, end: 202206
  2. REGORAFENIB [Suspect]
     Active Substance: REGORAFENIB
     Indication: Metastases to lung
  3. REGORAFENIB [Suspect]
     Active Substance: REGORAFENIB
     Indication: Metastases to lymph nodes

REACTIONS (1)
  - Metastases to central nervous system [None]

NARRATIVE: CASE EVENT DATE: 20220101
